FAERS Safety Report 17213183 (Version 3)
Quarter: 2020Q1

REPORT INFORMATION
  Report Type: Report from Study
  Country: JP (occurrence: JP)
  Receive Date: 20191230
  Receipt Date: 20200210
  Transmission Date: 20200409
  Serious: Yes (Other)
  Sender: FDA-Public Use
  Company Number: JP-BEH-2019111145

PATIENT
  Age: 39 Year
  Sex: Male
  Weight: 72.4 kg

DRUGS (17)
  1. ECARD [Concomitant]
     Active Substance: CANDESARTAN CILEXETIL\HYDROCHLOROTHIAZIDE
     Indication: TYPE 2 DIABETES MELLITUS
     Route: 048
  2. IDELVION [Suspect]
     Active Substance: COAGULATION FACTOR IX RECOMBINANT HUMAN
     Dosage: 4000 INTERNATIONAL UNIT, TOT
     Route: 042
     Dates: start: 201907, end: 201907
  3. IDELVION [Suspect]
     Active Substance: COAGULATION FACTOR IX RECOMBINANT HUMAN
     Dosage: 4000 INTERNATIONAL UNIT, TOT
     Route: 042
     Dates: start: 201907, end: 201907
  4. IDELVION [Suspect]
     Active Substance: COAGULATION FACTOR IX RECOMBINANT HUMAN
     Dosage: 4000 INTERNATIONAL UNIT, TOT
     Route: 042
     Dates: start: 201907, end: 201907
  5. ISENTRESS [Concomitant]
     Active Substance: RALTEGRAVIR POTASSIUM
     Indication: TYPE 2 DIABETES MELLITUS
     Dosage: UNK
     Route: 048
     Dates: end: 20191122
  6. ADALAT [Concomitant]
     Active Substance: NIFEDIPINE
     Indication: TYPE 2 DIABETES MELLITUS
     Route: 048
  7. MYSLEE [Concomitant]
     Active Substance: ZOLPIDEM TARTRATE
     Indication: TYPE 2 DIABETES MELLITUS
     Route: 048
  8. IDELVION [Suspect]
     Active Substance: COAGULATION FACTOR IX RECOMBINANT HUMAN
     Indication: FACTOR IX DEFICIENCY
     Dosage: 3000-4000 INTERNATIONAL UNIT, ONCE EVERY FOUR WEEKS
     Route: 042
     Dates: start: 20171216, end: 20190602
  9. IDELVION [Suspect]
     Active Substance: COAGULATION FACTOR IX RECOMBINANT HUMAN
     Dosage: 4000 INTERNATIONAL UNIT, TOT
     Route: 042
     Dates: start: 201907, end: 201907
  10. IDELVION [Suspect]
     Active Substance: COAGULATION FACTOR IX RECOMBINANT HUMAN
     Dosage: 4000 INTERNATIONAL UNIT, ONE MONTH
     Route: 042
     Dates: start: 20190801, end: 20190901
  11. IDELVION [Suspect]
     Active Substance: COAGULATION FACTOR IX RECOMBINANT HUMAN
     Indication: PROPHYLAXIS
     Dosage: 4000 INTERNATIONAL UNIT, TOT
     Route: 042
     Dates: start: 201906, end: 201906
  12. IDELVION [Suspect]
     Active Substance: COAGULATION FACTOR IX RECOMBINANT HUMAN
     Dosage: 4000 INTERNATIONAL UNIT, ONE MONTH
     Route: 042
     Dates: start: 20190801, end: 20190901
  13. IDELVION [Suspect]
     Active Substance: COAGULATION FACTOR IX RECOMBINANT HUMAN
     Dosage: UNK
     Route: 042
     Dates: start: 201910, end: 201912
  14. IDELVION [Suspect]
     Active Substance: COAGULATION FACTOR IX RECOMBINANT HUMAN
     Dosage: UNK
     Route: 042
     Dates: start: 201910, end: 201912
  15. IDELVION [Suspect]
     Active Substance: COAGULATION FACTOR IX RECOMBINANT HUMAN
     Indication: FACTOR IX DEFICIENCY
     Dosage: 3000-4000 INTERNATIONAL UNIT, ONCE EVERY FOUR WEEKS
     Route: 042
     Dates: start: 20171216, end: 20190602
  16. IDELVION [Suspect]
     Active Substance: COAGULATION FACTOR IX RECOMBINANT HUMAN
     Indication: PROPHYLAXIS
     Dosage: 4000 INTERNATIONAL UNIT, TOT
     Route: 042
     Dates: start: 201906, end: 201906
  17. DESCOVY [Concomitant]
     Active Substance: EMTRICITABINE\TENOFOVIR ALAFENAMIDE FUMARATE
     Indication: TYPE 2 DIABETES MELLITUS
     Dosage: UNK
     Route: 048
     Dates: start: 20180627, end: 20191122

REACTIONS (1)
  - Type 2 diabetes mellitus [Recovering/Resolving]

NARRATIVE: CASE EVENT DATE: 20190726
